FAERS Safety Report 16821256 (Version 1)
Quarter: 2019Q3

REPORT INFORMATION
  Report Type: Spontaneous
  Country: DE (occurrence: DE)
  Receive Date: 20190918
  Receipt Date: 20190918
  Transmission Date: 20191005
  Serious: Yes (Congenital Anomaly, Other)
  Sender: FDA-Public Use
  Company Number: DE-AUROBINDO-AUR-APL-2019-060377

PATIENT
  Sex: Female
  Weight: 3.78 kg

DRUGS (1)
  1. MIRTAZAPINE. [Suspect]
     Active Substance: MIRTAZAPINE
     Indication: SLEEP DISORDER
     Dosage: 7.5 [MG/D ]/ INITIAL 7.5MG/D, DOSAGE DECREASED TO 1-4MG/D FROM WEEK 5
     Route: 064
     Dates: start: 20180325, end: 20190105

REACTIONS (2)
  - Foetal exposure during pregnancy [Unknown]
  - Congenital hydronephrosis [Not Recovered/Not Resolved]
